FAERS Safety Report 9177581 (Version 2)
Quarter: 2014Q1

REPORT INFORMATION
  Report Type: Spontaneous
  Country: US (occurrence: US)
  Receive Date: 20130321
  Receipt Date: 20140331
  Transmission Date: 20141002
  Serious: Yes (Other)
  Sender: FDA-Public Use
  Company Number: US-BAYER-2013-033069

PATIENT
  Age: 38 Year
  Sex: Female
  Weight: 79.37 kg

DRUGS (1)
  1. MIRENA [Suspect]
     Indication: CONTRACEPTION
     Dosage: 20 MCG/24HR, CONT
     Route: 015
     Dates: start: 2011, end: 20130303

REACTIONS (3)
  - Ruptured ectopic pregnancy [None]
  - Drug ineffective [None]
  - Abdominal pain lower [None]
